FAERS Safety Report 9331636 (Version 1)
Quarter: 2013Q2

REPORT INFORMATION
  Report Type: Spontaneous
  Country: JP (occurrence: JP)
  Receive Date: 20130605
  Receipt Date: 20130605
  Transmission Date: 20140414
  Serious: Yes (Death)
  Sender: FDA-Public Use
  Company Number: JP-PFIZER INC-2013169833

PATIENT
  Age: 56 Year
  Sex: Male

DRUGS (2)
  1. CISPLATIN [Suspect]
     Indication: NON-SMALL CELL LUNG CANCER
     Dosage: 80 MG/M2, ON DAY 1 EVERY 3 WEEKS FOR 3 CYCLES (1 IN 3 WK)
  2. VINORELBINE [Suspect]
     Indication: NON-SMALL CELL LUNG CANCER
     Dosage: CYCLIC, ON DAYS 1 AND 8 EVERY 3 WEEKS FOR 3 CYCLES (2 IN 1 WK)

REACTIONS (2)
  - Interstitial lung disease [Fatal]
  - Respiratory failure [None]
